FAERS Safety Report 16270014 (Version 1)
Quarter: 2019Q2

REPORT INFORMATION
  Report Type: Spontaneous
  Country: US (occurrence: US)
  Receive Date: 20190502
  Receipt Date: 20190502
  Transmission Date: 20190711
  Serious: Yes (Other)
  Sender: FDA-Public Use
  Company Number: None

PATIENT
  Age: 26 Year
  Sex: Male

DRUGS (3)
  1. BUPRENORPHINE/NALOXONE TABLETS [Suspect]
     Active Substance: BUPRENORPHINE\NALOXONE
     Indication: DRUG DEPENDENCE
     Route: 048
     Dates: start: 20180104, end: 20180731
  2. BUPRENORPHINE NALOXONE 8-NG TABLETS [Concomitant]
     Dates: start: 20180104, end: 20180731
  3. SUBOXONE [Concomitant]
     Active Substance: BUPRENORPHINE HYDROCHLORIDE\NALOXONE HYDROCHLORIDE
     Dates: start: 20180801

REACTIONS (2)
  - Therapeutic product effect incomplete [None]
  - Product solubility abnormal [None]

NARRATIVE: CASE EVENT DATE: 20180525
